FAERS Safety Report 16974646 (Version 1)
Quarter: 2019Q4

REPORT INFORMATION
  Report Type: Spontaneous
  Country: CA (occurrence: CA)
  Receive Date: 20191030
  Receipt Date: 20191030
  Transmission Date: 20200122
  Serious: Yes (Other)
  Sender: FDA-Public Use
  Company Number: CA-GLAXOSMITHKLINE-CA2019AMR193429

PATIENT

DRUGS (1)
  1. FLONASE ALLERGY RELIEF [Suspect]
     Active Substance: FLUTICASONE PROPIONATE
     Indication: PRODUCT USED FOR UNKNOWN INDICATION
     Dosage: UNK

REACTIONS (8)
  - Unevaluable event [Unknown]
  - Hormone level abnormal [Unknown]
  - Steroid diabetes [Unknown]
  - Fluid retention [Unknown]
  - General physical health deterioration [Unknown]
  - Psychotic disorder [Unknown]
  - Asthma [Unknown]
  - Immunosuppression [Unknown]
